FAERS Safety Report 12686981 (Version 2)
Quarter: 2016Q3

REPORT INFORMATION
  Report Type: Spontaneous
  Country: CN (occurrence: CN)
  Receive Date: 20160825
  Receipt Date: 20160901
  Transmission Date: 20161109
  Serious: Yes (Other)
  Sender: FDA-Public Use
  Company Number: CN-GLAXOSMITHKLINE-CN2016GSK122880

PATIENT
  Sex: Male

DRUGS (1)
  1. LAMIVUDINE. [Suspect]
     Active Substance: LAMIVUDINE
     Indication: HEPATITIS B
     Dosage: 100 MG, QD
     Route: 048
     Dates: start: 20150620, end: 20160219

REACTIONS (4)
  - Renal impairment [Recovering/Resolving]
  - Drug resistance [Recovering/Resolving]
  - Alanine aminotransferase increased [Recovering/Resolving]
  - Infection [Recovering/Resolving]
